FAERS Safety Report 5030147-0 (Version None)
Quarter: 2006Q2

REPORT INFORMATION
  Report Type: 
  Country: None (occurrence: None)
  Receive Date: 20060614
  Receipt Date: 20060529
  Transmission Date: 20061013
  Serious: Yes (Death)
  Sender: FDA-Public Use
  Company Number: PHBS2006FR07808

PATIENT
  Age: 38 Year
  Sex: Female

DRUGS (8)
  1. CYCLOSPORINE [Suspect]
     Indication: SYSTEMIC LUPUS ERYTHEMATOSUS
     Dates: start: 19940101, end: 20020101
  2. PREDNISONE [Suspect]
     Indication: SYSTEMIC LUPUS ERYTHEMATOSUS
     Dosage: SEE IMAGE, ORAL
     Route: 048
     Dates: start: 19920101
  3. METHOTREXATE [Suspect]
     Indication: SYSTEMIC LUPUS ERYTHEMATOSUS
     Dosage: SEE IMAGE
     Route: 048
     Dates: end: 19940101
  4. METHOTREXATE [Suspect]
     Indication: SYSTEMIC LUPUS ERYTHEMATOSUS
     Dosage: SEE IMAGE
     Route: 048
     Dates: start: 19920101
  5. METHOTREXATE [Suspect]
     Indication: SYSTEMIC LUPUS ERYTHEMATOSUS
     Dosage: SEE IMAGE
     Route: 048
     Dates: start: 20020101
  6. CYCLOPHOSPHAMIDE [Suspect]
     Indication: SYSTEMIC LUPUS ERYTHEMATOSUS
     Dosage: IV INFUSION
     Route: 042
     Dates: start: 19930101
  7. ANTIMALARIALS [Concomitant]
  8. CHLOROQUINE PHOSPHATE [Concomitant]

REACTIONS (8)
  - BLOOD LACTATE DEHYDROGENASE INCREASED [None]
  - BURKITT'S LYMPHOMA [None]
  - CSF PROTEIN INCREASED [None]
  - FACIAL PALSY [None]
  - HYPOAESTHESIA [None]
  - NERVE ROOT LESION [None]
  - NERVOUS SYSTEM DISORDER [None]
  - TRIGEMINAL NERVE DISORDER [None]
